FAERS Safety Report 7309437-4 (Version None)
Quarter: 2011Q1

REPORT INFORMATION
  Report Type: 
  Country: None (occurrence: None)
  Receive Date: 20110223
  Receipt Date: 20110214
  Transmission Date: 20110831
  Serious: Yes (Hospitalization)
  Sender: FDA-Public Use
  Company Number: FR-BAXTER-2011BH001455

PATIENT
  Age: 61 Year
  Sex: Female

DRUGS (2)
  1. FLUDARA [Suspect]
     Indication: BONE MARROW TRANSPLANT
     Route: 042
     Dates: start: 20101112, end: 20101114
  2. CYCLOPHOSPHAMIDE [Suspect]
     Indication: BONE MARROW TRANSPLANT
     Route: 042
     Dates: start: 20101112, end: 20101114

REACTIONS (3)
  - CONVULSION [None]
  - CONFUSIONAL STATE [None]
  - MYOCLONUS [None]
